FAERS Safety Report 13697038 (Version 1)
Quarter: 2017Q2

REPORT INFORMATION
  Report Type: Spontaneous
  Country: SE (occurrence: SE)
  Receive Date: 20170628
  Receipt Date: 20170628
  Transmission Date: 20170830
  Serious: Yes (Life-Threatening, Hospitalization)
  Sender: FDA-Public Use
  Company Number: SE-TEVA-779030ACC

PATIENT
  Age: 22 Year
  Sex: Female

DRUGS (2)
  1. IRON [Concomitant]
     Active Substance: IRON
  2. PAROXETIN ACTAVIS 20 MG FILMDRAGERAD TABLETT [Suspect]
     Active Substance: PAROXETINE HYDROCHLORIDE
     Dosage: 40 MILLIGRAM DAILY; 20 MG DOSE 40 MG PER DAY
     Dates: start: 201506, end: 201705

REACTIONS (12)
  - Fatigue [Recovered/Resolved]
  - Intentional self-injury [Recovered/Resolved]
  - Libido decreased [Recovered/Resolved]
  - Nausea [Recovered/Resolved]
  - Disturbance in attention [Recovered/Resolved]
  - Mood swings [Recovered/Resolved]
  - Anaemia [Recovered/Resolved]
  - Indifference [Recovered/Resolved]
  - Restlessness [Recovered/Resolved]
  - Depressed mood [Recovered/Resolved]
  - Cognitive disorder [Recovered/Resolved]
  - Dizziness [Recovered/Resolved]

NARRATIVE: CASE EVENT DATE: 201705
